FAERS Safety Report 19518663 (Version 1)
Quarter: 2021Q3

REPORT INFORMATION
  Report Type: Spontaneous
  Country: DE (occurrence: DE)
  Receive Date: 20210712
  Receipt Date: 20210712
  Transmission Date: 20211014
  Serious: Yes (Hospitalization, Other)
  Sender: FDA-Public Use
  Company Number: NVSC2021DE149214

PATIENT
  Age: 56 Year
  Sex: Female
  Weight: 86 kg

DRUGS (3)
  1. LEVOTHYROXINE SODIUM. [Concomitant]
     Active Substance: LEVOTHYROXINE SODIUM
     Indication: PRODUCT USED FOR UNKNOWN INDICATION
     Dosage: 0.15 MG, 1?0?0?0, TABLETTEN
     Route: 048
  2. RAMIPRIL. [Suspect]
     Active Substance: RAMIPRIL
     Indication: PRODUCT USED FOR UNKNOWN INDICATION
     Dosage: 5 MG, QD (1?0?0?0)
     Route: 048
  3. METOPROLOL. [Suspect]
     Active Substance: METOPROLOL
     Indication: PRODUCT USED FOR UNKNOWN INDICATION
     Dosage: 47.5 MG, QD ( 1?0?0?0)
     Route: 048

REACTIONS (5)
  - Dizziness [Unknown]
  - Muscular weakness [Unknown]
  - Coordination abnormal [Unknown]
  - Headache [Unknown]
  - Bradycardia [Unknown]
